FAERS Safety Report 6849765-X (Version None)
Quarter: 2010Q3

REPORT INFORMATION
  Report Type: 
  Country: None (occurrence: None)
  Receive Date: 20100716
  Receipt Date: 20071009
  Transmission Date: 20110219
  Serious: No
  Sender: FDA-Public Use
  Company Number: US-PFIZER INC-2007084142

PATIENT
  Sex: Female
  Weight: 80 kg

DRUGS (6)
  1. CHANTIX [Suspect]
     Indication: SMOKING CESSATION THERAPY
     Dates: start: 20071003
  2. WELLBUTRIN [Concomitant]
  3. RISPERIDONE [Concomitant]
  4. LISINOPRIL [Concomitant]
  5. VICODIN [Concomitant]
  6. COLACE [Concomitant]

REACTIONS (4)
  - ABNORMAL DREAMS [None]
  - DRUG DOSE OMISSION [None]
  - FATIGUE [None]
  - NIGHTMARE [None]
